FAERS Safety Report 20045205 (Version 1)
Quarter: 2021Q4

REPORT INFORMATION
  Report Type: Spontaneous
  Country: FR (occurrence: FR)
  Receive Date: 20211108
  Receipt Date: 20211108
  Transmission Date: 20220303
  Serious: Yes (Life-Threatening, Hospitalization, Other)
  Sender: FDA-Public Use
  Company Number: None

PATIENT
  Age: 78 Year
  Sex: Male
  Weight: 102.6 kg

DRUGS (15)
  1. ATORVASTATIN [Suspect]
     Active Substance: ATORVASTATIN
     Indication: Myocardial ischaemia
     Dosage: 40 MILLIGRAM, QD
     Route: 048
     Dates: start: 20210615
  2. FUROSEMIDE [Suspect]
     Active Substance: FUROSEMIDE
     Indication: Cardiac failure
     Dosage: 40 MILLIGRAM, QD
     Route: 048
     Dates: start: 20210608, end: 20210611
  3. FUROSEMIDE [Suspect]
     Active Substance: FUROSEMIDE
     Dosage: 60 MILLIGRAM, QD
     Route: 048
     Dates: start: 20210702, end: 20210709
  4. FUROSEMIDE [Suspect]
     Active Substance: FUROSEMIDE
     Dosage: 60 MILLIGRAM, QD
     Route: 048
     Dates: start: 20210612, end: 20210614
  5. FUROSEMIDE [Suspect]
     Active Substance: FUROSEMIDE
     Dosage: 80 MILLIGRAM, QD
     Route: 048
     Dates: start: 20210615
  6. TEICOPLANIN [Suspect]
     Active Substance: TEICOPLANIN
     Indication: Osteitis
     Dosage: 1200 MILLIGRAM
     Route: 042
     Dates: start: 20210702, end: 20210712
  7. ENOXAPARIN SODIUM [Suspect]
     Active Substance: ENOXAPARIN SODIUM
     Indication: Atrial fibrillation
     Dosage: 4000 INTERNATIONAL UNIT, QD
     Route: 058
     Dates: start: 20210604, end: 20210709
  8. ERTAPENEM [Suspect]
     Active Substance: ERTAPENEM
     Indication: Osteitis
     Dosage: 1 GRAM, QD
     Route: 042
     Dates: start: 20210702, end: 20210712
  9. ELIQUIS [Suspect]
     Active Substance: APIXABAN
     Indication: Thrombosis prophylaxis
     Dosage: 1 DOSAGE FORM, QD
     Route: 048
     Dates: start: 20210709, end: 20210712
  10. NEBIVOLOL [Concomitant]
     Active Substance: NEBIVOLOL
     Indication: Myocardial ischaemia
     Dosage: 5 MILLIGRAM, QD
     Route: 048
     Dates: start: 20210614
  11. CANDESARTAN CILEXETIL [Concomitant]
     Active Substance: CANDESARTAN CILEXETIL
     Indication: Hypertension
     Dosage: 1 DOSAGE FORM, QD
     Route: 048
     Dates: start: 20210603, end: 20210711
  12. AMOXICILLINE                       /00249601/ [Concomitant]
     Indication: Osteitis
     Dosage: 1 GRAM, Q8H
     Route: 048
     Dates: start: 20210618, end: 20210629
  13. CLAVULANIC ACID [Concomitant]
     Active Substance: CLAVULANIC ACID
     Indication: Osteitis
     Dosage: 1 GRAM, Q8H
     Route: 048
     Dates: start: 20210618, end: 20210629
  14. AMOXICILLINE                       /00249601/ [Concomitant]
     Indication: Osteitis
     Dosage: 1 GRAM, Q8H
     Route: 042
     Dates: start: 20210618, end: 20210629
  15. CLAVULANIC ACID [Concomitant]
     Active Substance: CLAVULANIC ACID
     Indication: Osteitis
     Dosage: 1 GRAM, Q8H
     Route: 042
     Dates: start: 20210605, end: 20210618

REACTIONS (1)
  - Thrombocytopenia [Recovering/Resolving]

NARRATIVE: CASE EVENT DATE: 20210711
